FAERS Safety Report 11632841 (Version 12)
Quarter: 2016Q1

REPORT INFORMATION
  Report Type: Report from Study
  Country: CA (occurrence: CA)
  Receive Date: 20151015
  Receipt Date: 20160307
  Transmission Date: 20160525
  Serious: Yes (Other)
  Sender: FDA-Public Use
  Company Number: CA-ALEXION PHARMACEUTICALS INC-A201503643

PATIENT
  Age: 24 Year
  Sex: Male
  Weight: 82.5 kg

DRUGS (18)
  1. TYLENOL [Concomitant]
     Active Substance: ACETAMINOPHEN
     Indication: PAIN
     Dosage: 1 G, Q6H
     Route: 048
     Dates: start: 20150910
  2. TYLENOL [Concomitant]
     Active Substance: ACETAMINOPHEN
     Indication: HEADACHE
  3. CHOLECALCIFEROL [Concomitant]
     Active Substance: CHOLECALCIFEROL
     Indication: VITAMIN SUPPLEMENTATION
     Dosage: 10000 IU, QW
     Route: 048
     Dates: start: 20150910
  4. COUMADIN [Suspect]
     Active Substance: WARFARIN SODIUM
     Indication: THROMBOSIS IN DEVICE
     Dosage: 9 MG, QD
     Route: 048
     Dates: start: 20151009
  5. PENICILLIN V                       /00001801/ [Concomitant]
     Active Substance: PENICILLIN V
     Indication: PROPHYLAXIS
     Dosage: 600 MG, BID
     Route: 048
     Dates: start: 20150909
  6. COUMADIN [Suspect]
     Active Substance: WARFARIN SODIUM
     Dosage: 15 MG, QD
     Route: 048
     Dates: start: 20151009
  7. ARANESP [Concomitant]
     Active Substance: DARBEPOETIN ALFA
     Indication: BONE MARROW FAILURE
     Dosage: 0.4 MG, QW ON THURS
     Route: 058
     Dates: start: 20150909
  8. TYLENOL [Concomitant]
     Active Substance: ACETAMINOPHEN
     Indication: PYREXIA
  9. PANTOLOC                           /01263204/ [Concomitant]
     Active Substance: PANTOPRAZOLE SODIUM
     Indication: GASTROINTESTINAL DISORDER
     Dosage: 40 MG, QD
     Route: 048
     Dates: start: 20150907
  10. CALCITRIOL. [Concomitant]
     Active Substance: CALCITRIOL
     Indication: VITAMIN SUPPLEMENTATION
     Dosage: 0.25 ?G, TIW
     Route: 065
     Dates: start: 20150913
  11. SOLIRIS [Interacting]
     Active Substance: ECULIZUMAB
     Dosage: 1200 MG, Q2W
     Route: 042
     Dates: start: 20151009
  12. SOLIRIS [Interacting]
     Active Substance: ECULIZUMAB
     Dosage: 1200 MG, Q2W
     Route: 042
     Dates: start: 20151009
  13. CALCIUM [Concomitant]
     Active Substance: CALCIUM
     Indication: VITAMIN SUPPLEMENTATION
     Dosage: 500 MG, TID
     Route: 048
     Dates: start: 20150913
  14. LASIX [Concomitant]
     Active Substance: FUROSEMIDE
     Indication: DIURETIC THERAPY
     Dosage: 80 MG, BID
     Route: 048
     Dates: start: 20150910
  15. XARELTO [Concomitant]
     Active Substance: RIVAROXABAN
     Indication: ANTICOAGULANT THERAPY
     Dosage: 20 MG, QD
     Route: 048
  16. SOLIRIS [Interacting]
     Active Substance: ECULIZUMAB
     Indication: HAEMOLYTIC URAEMIC SYNDROME
     Dosage: 900 MG, QW
     Route: 042
     Dates: start: 20150909
  17. COUMADIN [Suspect]
     Active Substance: WARFARIN SODIUM
     Dosage: 13 MG, UNK
     Route: 065
  18. FOLIC ACID. [Concomitant]
     Active Substance: FOLIC ACID
     Indication: VITAMIN SUPPLEMENTATION
     Dosage: 5 MG, QD
     Route: 048
     Dates: start: 20150907

REACTIONS (16)
  - Thrombosis in device [Recovered/Resolved]
  - Peripheral swelling [Recovered/Resolved]
  - Catheter site haemorrhage [Recovered/Resolved]
  - Carotid artery occlusion [Not Recovered/Not Resolved]
  - International normalised ratio increased [Not Recovered/Not Resolved]
  - Blood pressure increased [Not Recovered/Not Resolved]
  - Head discomfort [Not Recovered/Not Resolved]
  - Catheter site pain [Recovered/Resolved]
  - Drug interaction [Unknown]
  - Anticoagulation drug level below therapeutic [Recovered/Resolved]
  - Blood pressure increased [Not Recovered/Not Resolved]
  - Blood pressure increased [Recovered/Resolved]
  - Vomiting [Recovered/Resolved]
  - Fatigue [Not Recovered/Not Resolved]
  - Neck pain [Recovered/Resolved]
  - Foot fracture [Not Recovered/Not Resolved]

NARRATIVE: CASE EVENT DATE: 20150914
